FAERS Safety Report 12753112 (Version 1)
Quarter: 2016Q3

REPORT INFORMATION
  Report Type: Spontaneous
  Country: US (occurrence: US)
  Receive Date: 20160915
  Receipt Date: 20160915
  Transmission Date: 20161109
  Serious: No
  Sender: FDA-Public Use
  Company Number: US-ASTELLAS-2015US039308

PATIENT
  Sex: Female

DRUGS (1)
  1. XTANDI [Suspect]
     Active Substance: ENZALUTAMIDE
     Indication: TRIPLE NEGATIVE BREAST CANCER
     Dosage: 4 PILLS (4 X 40 MG CAPSULES), ONCE DAILY
     Route: 065

REACTIONS (1)
  - Off label use [Unknown]
